FAERS Safety Report 11449457 (Version 10)
Quarter: 2019Q2

REPORT INFORMATION
  Report Type: Spontaneous
  Country: CA (occurrence: CA)
  Receive Date: 20150903
  Receipt Date: 20190619
  Transmission Date: 20190711
  Serious: Yes (Other)
  Sender: FDA-Public Use
  Company Number: CA-AMGEN-CANSP2015089436

PATIENT
  Age: 52 Year
  Sex: Female

DRUGS (33)
  1. FOLIC ACID. [Suspect]
     Active Substance: FOLIC ACID
     Dosage: 5 MILLIGRAM, QWK
     Route: 048
  2. APO-IBUPROFEN [Suspect]
     Active Substance: IBUPROFEN
     Indication: ARTHRALGIA
     Dosage: UNK
     Route: 065
  3. RABEPRAZOLE SODIUM. [Concomitant]
     Active Substance: RABEPRAZOLE SODIUM
     Dosage: 20 MG, UNK
     Route: 048
  4. LEFLUNOMIDE. [Suspect]
     Active Substance: LEFLUNOMIDE
     Indication: RHEUMATOID ARTHRITIS
     Dosage: 20 MG, UNK
     Route: 065
     Dates: start: 200910, end: 201302
  5. IBUPROFEN. [Suspect]
     Active Substance: IBUPROFEN
     Indication: ARTHRALGIA
     Dosage: UNK
     Route: 065
  6. FOLIC ACID. [Suspect]
     Active Substance: FOLIC ACID
     Indication: PRODUCT USED FOR UNKNOWN INDICATION
     Dosage: 5 MG, QWK, EVERY WEDNESDAY FOR 90 DAYS
     Route: 048
     Dates: start: 20131015
  7. PARIET [Suspect]
     Active Substance: RABEPRAZOLE SODIUM
     Indication: PRODUCT USED FOR UNKNOWN INDICATION
     Dosage: 20 MILLIGRAM, QID FOR 90 DAYS
     Route: 048
     Dates: start: 20131015
  8. NAPROSYN [Suspect]
     Active Substance: NAPROXEN
     Indication: RHEUMATOID ARTHRITIS
     Dosage: 500 MILLIGRAM, QD FOR 90 DAYS
     Route: 048
     Dates: start: 20130702
  9. METHOTREXATE. [Suspect]
     Active Substance: METHOTREXATE
     Indication: RHEUMATOID ARTHRITIS
     Dosage: 25 MILLIGRAM, QWK
     Route: 048
     Dates: start: 200910, end: 201205
  10. NAPROSYN [Suspect]
     Active Substance: NAPROXEN
     Dosage: 500 MILLIGRAM
     Route: 048
  11. XELJANZ [Concomitant]
     Active Substance: TOFACITINIB CITRATE
     Indication: RHEUMATOID ARTHRITIS
     Dosage: 5 MILLIGRAM, BID
     Route: 048
     Dates: start: 20150907
  12. ACTEMRA [Suspect]
     Active Substance: TOCILIZUMAB
     Indication: PRODUCT USED FOR UNKNOWN INDICATION
     Dosage: 4 MILLIGRAM/KILOGRAM
     Route: 042
     Dates: start: 201301, end: 201310
  13. IBUPROFEN. [Suspect]
     Active Substance: IBUPROFEN
     Dosage: 600 MILLIGRAM, TID
     Route: 048
  14. PARIET [Suspect]
     Active Substance: RABEPRAZOLE SODIUM
     Dosage: 20 MILLIGRAM, QID , FOR 90 DAYS
     Route: 048
     Dates: start: 20140613
  15. PARIET [Suspect]
     Active Substance: RABEPRAZOLE SODIUM
     Dosage: 20 MILLIGRAM, QID
     Route: 048
  16. METHYLPREDNISOLONE. [Suspect]
     Active Substance: METHYLPREDNISOLONE
     Indication: PRODUCT USED FOR UNKNOWN INDICATION
     Dosage: 40 MILLIGRAM
     Route: 048
     Dates: start: 20140409
  17. NAPROSYN [Suspect]
     Active Substance: NAPROXEN
     Dosage: 500 MILLIGRAM, BID
     Route: 048
  18. APO-FOLIC ACID [Suspect]
     Active Substance: FOLIC ACID
     Indication: PRODUCT USED FOR UNKNOWN INDICATION
     Dosage: 5 MG, QWK
     Route: 048
  19. METHOTREXATE. [Suspect]
     Active Substance: METHOTREXATE
     Dosage: 2.5 MILLIGRAM, QWK EVERY WEDNESDAY (5 TABLETS/WEEK) FOR 90 DAYS
     Route: 048
     Dates: start: 20140613
  20. IBUPROFEN. [Suspect]
     Active Substance: IBUPROFEN
     Indication: RHEUMATOID ARTHRITIS
     Dosage: 600 MILLIGRAM, TID FOR 60 DAYS
     Route: 048
     Dates: start: 20140514
  21. NAPROXEN. [Suspect]
     Active Substance: NAPROXEN
     Indication: RHEUMATOID ARTHRITIS
     Dosage: 500 MG, BID, FOR 90 DAYS
     Route: 048
     Dates: start: 20140613
  22. NAPROXEN. [Suspect]
     Active Substance: NAPROXEN
     Dosage: 500 MG
     Route: 048
     Dates: start: 20140613
  23. NAPROSYN [Suspect]
     Active Substance: NAPROXEN
     Dosage: 500 MILLIGRAM, BID FOR 90 DAYS
     Route: 048
     Dates: start: 20130702
  24. RITUXAN [Suspect]
     Active Substance: RITUXIMAB
     Indication: RHEUMATOID ARTHRITIS
     Dosage: UNK
     Route: 042
  25. ENBREL [Suspect]
     Active Substance: ETANERCEPT
     Indication: RHEUMATOID ARTHRITIS
     Dosage: UNK
     Route: 058
  26. HUMIRA [Suspect]
     Active Substance: ADALIMUMAB
     Indication: RHEUMATOID ARTHRITIS
     Dosage: 40 MG, UNK
     Route: 058
     Dates: start: 201001, end: 201008
  27. METHOTREXATE. [Suspect]
     Active Substance: METHOTREXATE
     Dosage: 2.5 MILLIGRAM, QWK EVERY TUESDAY 5 TABLETS ONCE A WEEK
     Route: 048
     Dates: start: 20131015
  28. ARAVA [Suspect]
     Active Substance: LEFLUNOMIDE
     Indication: RHEUMATOID ARTHRITIS
     Dosage: 20 MILLIGRAM
     Route: 065
  29. NAPROXEN. [Suspect]
     Active Substance: NAPROXEN
     Dosage: 750 MG, BID, FOR 90 DAYS
     Route: 048
     Dates: start: 20140925
  30. FOLIC ACID. [Suspect]
     Active Substance: FOLIC ACID
     Dosage: 5 MG, QWK,EVERY FRIDAY FOR 90 DAYS
     Route: 048
     Dates: start: 20140613
  31. NAPROSYN [Suspect]
     Active Substance: NAPROXEN
     Dosage: 750 MILLIGRAM, BID
     Route: 048
  32. APO-IBUPROFEN [Suspect]
     Active Substance: IBUPROFEN
     Indication: RHEUMATOID ARTHRITIS
     Dosage: 600 MG, TID
     Route: 048
  33. ARAVA [Suspect]
     Active Substance: LEFLUNOMIDE
     Dosage: 4 MILLIGRAM
     Route: 065

REACTIONS (18)
  - C-reactive protein increased [Not Recovered/Not Resolved]
  - Hypersensitivity [Not Recovered/Not Resolved]
  - Nasal ulcer [Not Recovered/Not Resolved]
  - Drug ineffective [Not Recovered/Not Resolved]
  - Rheumatoid arthritis [Not Recovered/Not Resolved]
  - Obesity [Not Recovered/Not Resolved]
  - Therapeutic response decreased [Not Recovered/Not Resolved]
  - Therapeutic product effect decreased [Not Recovered/Not Resolved]
  - Condition aggravated [Not Recovered/Not Resolved]
  - Joint swelling [Not Recovered/Not Resolved]
  - Pneumonia [Not Recovered/Not Resolved]
  - Stress [Not Recovered/Not Resolved]
  - Pain [Not Recovered/Not Resolved]
  - Swelling [Not Recovered/Not Resolved]
  - Erythema [Not Recovered/Not Resolved]
  - Drug hypersensitivity [Not Recovered/Not Resolved]
  - Mouth ulceration [Not Recovered/Not Resolved]
  - Blood alkaline phosphatase increased [Not Recovered/Not Resolved]
